FAERS Safety Report 17194334 (Version 2)
Quarter: 2020Q2

REPORT INFORMATION
  Report Type: Spontaneous
  Country: US (occurrence: US)
  Receive Date: 20191224
  Receipt Date: 20200527
  Transmission Date: 20200713
  Serious: Yes (Hospitalization)
  Sender: FDA-Public Use
  Company Number: US-ASTRAZENECA-2019SF84362

PATIENT
  Age: 19018 Day
  Sex: Male

DRUGS (52)
  1. METRONIDAZOLE. [Concomitant]
     Active Substance: METRONIDAZOLE
     Indication: ANTIBIOTIC THERAPY
     Dates: start: 20171207
  2. FENOFIBRATE. [Concomitant]
     Active Substance: FENOFIBRATE
  3. TRAMADOL. [Concomitant]
     Active Substance: TRAMADOL
  4. BREVIBLOC [Concomitant]
     Active Substance: ESMOLOL HYDROCHLORIDE
  5. FARXIGA [Suspect]
     Active Substance: DAPAGLIFLOZIN PROPANEDIOL
     Indication: TYPE 2 DIABETES MELLITUS
     Route: 048
     Dates: start: 20170927
  6. FARXIGA [Suspect]
     Active Substance: DAPAGLIFLOZIN PROPANEDIOL
     Indication: TYPE 2 DIABETES MELLITUS
     Route: 048
     Dates: start: 20171207
  7. DICLOFENAC SODIUM. [Concomitant]
     Active Substance: DICLOFENAC SODIUM
     Indication: PAIN
     Dates: start: 20171207
  8. VITAMIN C [Concomitant]
     Active Substance: ASCORBIC ACID
     Indication: VITAMIN SUPPLEMENTATION
     Dates: start: 20171207
  9. AZITHROMYCIN ANHYDROUS. [Concomitant]
     Active Substance: AZITHROMYCIN ANHYDROUS
  10. CEPHALEXIN. [Concomitant]
     Active Substance: CEPHALEXIN
  11. NICODERM CQ [Concomitant]
     Active Substance: NICOTINE
  12. ONDANSETRON [Concomitant]
     Active Substance: ONDANSETRON
  13. NACL [Concomitant]
     Active Substance: SODIUM CHLORIDE
  14. VIAGRA [Concomitant]
     Active Substance: SILDENAFIL CITRATE
  15. FARXIGA [Suspect]
     Active Substance: DAPAGLIFLOZIN PROPANEDIOL
     Indication: TYPE 2 DIABETES MELLITUS
     Route: 048
     Dates: start: 20170827
  16. FISH OIL [Concomitant]
     Active Substance: FISH OIL
     Indication: CARDIAC DISORDER
     Dates: start: 20171207
  17. LEVAQUIN [Concomitant]
     Active Substance: LEVOFLOXACIN
  18. METFORMIN HCL [Concomitant]
     Active Substance: METFORMIN HYDROCHLORIDE
     Indication: DIABETES MELLITUS
     Dates: start: 20171207
  19. HYDROCHLOROTHIAZIDE. [Concomitant]
     Active Substance: HYDROCHLOROTHIAZIDE
  20. PERCOCET [Concomitant]
     Active Substance: ACETAMINOPHEN\OXYCODONE HYDROCHLORIDE
  21. LIDOCAINE. [Concomitant]
     Active Substance: LIDOCAINE
  22. SIMVASTATIN. [Concomitant]
     Active Substance: SIMVASTATIN
  23. ZOSYN [Concomitant]
     Active Substance: PIPERACILLIN SODIUM\TAZOBACTAM SODIUM
  24. FARXIGA [Suspect]
     Active Substance: DAPAGLIFLOZIN PROPANEDIOL
     Indication: TYPE 2 DIABETES MELLITUS
     Route: 048
  25. FARXIGA [Suspect]
     Active Substance: DAPAGLIFLOZIN PROPANEDIOL
     Indication: TYPE 2 DIABETES MELLITUS
     Route: 048
     Dates: start: 20171126
  26. LORAZEPAM. [Concomitant]
     Active Substance: LORAZEPAM
     Indication: ANXIETY
     Dates: start: 20171207
  27. MIDAZOLAM. [Concomitant]
     Active Substance: MIDAZOLAM
  28. DIPRIVAN [Concomitant]
     Active Substance: PROPOFOL
  29. TORADOL [Concomitant]
     Active Substance: KETOROLAC TROMETHAMINE
  30. NAPROXEN. [Concomitant]
     Active Substance: NAPROXEN
  31. LISINOPRIL. [Concomitant]
     Active Substance: LISINOPRIL
     Indication: HYPERTENSION
     Dates: start: 20171207
  32. LORATADINE. [Concomitant]
     Active Substance: LORATADINE
     Indication: HYPERSENSITIVITY
     Dates: start: 20171207
  33. MIRALAX [Concomitant]
     Active Substance: POLYETHYLENE GLYCOL 3350
  34. NACL [Concomitant]
     Active Substance: SODIUM CHLORIDE
  35. AMOX-CLAV [Concomitant]
     Active Substance: AMOXICILLIN\CLAVULANATE POTASSIUM
  36. CLONIDINE. [Concomitant]
     Active Substance: CLONIDINE
  37. VITAMIN B12 [Concomitant]
     Active Substance: CYANOCOBALAMIN
     Indication: VITAMIN SUPPLEMENTATION
     Dates: start: 20171207
  38. METOCLOPRAMIDE. [Concomitant]
     Active Substance: METOCLOPRAMIDE
  39. CEFAZOLIN [Concomitant]
     Active Substance: CEFAZOLIN
  40. PHENYLEPHRINE [Concomitant]
     Active Substance: PHENYLEPHRINE HYDROCHLORIDE
  41. DIPRIVAN [Concomitant]
     Active Substance: PROPOFOL
  42. SEVOFLURANE. [Concomitant]
     Active Substance: SEVOFLURANE
  43. FLUTICASONE. [Concomitant]
     Active Substance: FLUTICASONE
  44. TRIAMCINOLONE [Concomitant]
     Active Substance: TRIAMCINOLONE
  45. CYCLOBENZAPRINE. [Concomitant]
     Active Substance: CYCLOBENZAPRINE
  46. METHYLPREDNISOLONE. [Concomitant]
     Active Substance: METHYLPREDNISOLONE
  47. HEPARIN [Concomitant]
     Active Substance: HEPARIN SODIUM
  48. NORCO [Concomitant]
     Active Substance: ACETAMINOPHEN\HYDROCODONE BITARTRATE
     Indication: PAIN
  49. DILAUDID [Concomitant]
     Active Substance: HYDROMORPHONE HYDROCHLORIDE
  50. DEXAMETHASONE. [Concomitant]
     Active Substance: DEXAMETHASONE
  51. CRESTOR [Concomitant]
     Active Substance: ROSUVASTATIN CALCIUM
  52. VOLTAREN [Concomitant]
     Active Substance: DICLOFENAC SODIUM

REACTIONS (9)
  - Necrotising fasciitis [Unknown]
  - Scrotal pain [Unknown]
  - Scrotal swelling [Unknown]
  - Fournier^s gangrene [Unknown]
  - Scrotal cyst [Unknown]
  - Groin pain [Unknown]
  - Groin abscess [Unknown]
  - Testicular pain [Unknown]
  - Cellulitis [Unknown]

NARRATIVE: CASE EVENT DATE: 201712
